FAERS Safety Report 15213671 (Version 1)
Quarter: 2018Q3

REPORT INFORMATION
  Report Type: Spontaneous
  Country: US (occurrence: US)
  Receive Date: 20180702
  Receipt Date: 20180702
  Transmission Date: 20181010
  Serious: Yes (Hospitalization)
  Sender: FDA-Public Use
  Company Number: None

PATIENT
  Sex: Male

DRUGS (9)
  1. IRON [Concomitant]
     Active Substance: IRON
  2. FOLIC ACID. [Concomitant]
     Active Substance: FOLIC ACID
  3. DULOXETINE. [Concomitant]
     Active Substance: DULOXETINE
  4. REVLIMID [Concomitant]
     Active Substance: LENALIDOMIDE
  5. LIDOCAINE. [Concomitant]
     Active Substance: LIDOCAINE
  6. GLYDO [Concomitant]
     Active Substance: LIDOCAINE HYDROCHLORIDE ANHYDROUS
  7. VITAMIN D3 [Concomitant]
     Active Substance: CHOLECALCIFEROL
  8. CHOLESTYRAMINE. [Concomitant]
     Active Substance: CHOLESTYRAMINE
  9. ERIVEDGE [Suspect]
     Active Substance: VISMODEGIB
     Indication: PLASMA CELL MYELOMA
     Route: 048
     Dates: start: 20170909

REACTIONS (3)
  - Weight decreased [None]
  - Alopecia [None]
  - Clostridium difficile infection [None]

NARRATIVE: CASE EVENT DATE: 2018
